FAERS Safety Report 8116533-0 (Version None)
Quarter: 2011Q4

REPORT INFORMATION
  Report Type: 
  Country: None (occurrence: None)
  Receive Date: 20111227
  Receipt Date: 20110902
  Transmission Date: 20120403
  Serious: No
  Sender: FDA-Public Use
  Company Number: PHEH2011US03392

PATIENT
  Sex: Female
  Weight: 70.3 kg

DRUGS (11)
  1. VITAMIN D (ERGOCALCIFEROL) CAPSULE [Concomitant]
  2. BENADRYL (AMMONIUM CHLORIDE, DIPHENHYDRAMINE HYDROCHLORIDE, MENTHOL, S [Concomitant]
  3. LEXAPRO [Concomitant]
  4. AMANTADINE (AMANTADINE) CAPSULE [Concomitant]
  5. MOBIC [Concomitant]
  6. MULTI-VITAMINS [Concomitant]
  7. PRILOSEC (OMEPRAZOLE) CAPSULE [Concomitant]
  8. KLONOPIN [Concomitant]
  9. CALCIUM CITRATE (CALCIUM CITRATE) TABLET [Concomitant]
  10. GILENYA [Suspect]
     Dosage: 1 DF, EVERYDAY, ORAL
     Route: 048
  11. VITAMIN B-COMPLEX (NO INGREDIENTS/SUBSTANCES) INJECTION [Concomitant]

REACTIONS (1)
  - FATIGUE [None]
